FAERS Safety Report 21303886 (Version 1)
Quarter: 2022Q3

REPORT INFORMATION
  Report Type: Spontaneous
  Country: US (occurrence: None)
  Receive Date: 20220907
  Receipt Date: 20220907
  Transmission Date: 20221027
  Serious: No
  Sender: FDA-Public Use
  Company Number: US-FARMAPROD-202012-1721

PATIENT
  Sex: Male

DRUGS (1)
  1. OXERVATE [Suspect]
     Active Substance: CENEGERMIN-BKBJ
     Indication: Sjogren^s syndrome
     Route: 047
     Dates: start: 20201130

REACTIONS (6)
  - Vision blurred [Unknown]
  - Eye pain [Unknown]
  - Drug ineffective [Not Recovered/Not Resolved]
  - Lacrimation increased [Not Recovered/Not Resolved]
  - Product administration error [Unknown]
  - Dry eye [Not Recovered/Not Resolved]
